FAERS Safety Report 5388043-5 (Version None)
Quarter: 2007Q3

REPORT INFORMATION
  Report Type: 
  Country: None (occurrence: None)
  Receive Date: 20070716
  Receipt Date: 20070703
  Transmission Date: 20080115
  Serious: Yes (Life-Threatening, Hospitalization, Other)
  Sender: FDA-Public Use
  Company Number: US-KINGPHARMUSA00001-K200700839

PATIENT

DRUGS (6)
  1. ALTACE [Suspect]
     Dosage: 2.5 MG, QD
     Route: 048
     Dates: end: 20070509
  2. CARDENSIEL [Suspect]
     Dosage: 2.5 MG, QD
     Route: 048
     Dates: end: 20070509
  3. PRAVIDUAL [Suspect]
     Dosage: 40 MG, QD
     Route: 048
     Dates: end: 20070509
  4. PREVISCAN  /00789001/ [Concomitant]
     Dosage: 15 MG, UNK
     Route: 048
     Dates: end: 20070509
  5. METFORMIN HCL [Concomitant]
     Dosage: 2550 MG, UNK
     Route: 048
     Dates: end: 20070509
  6. LASILIX  /00032601/ [Concomitant]
     Dosage: UNK, UNK
     Route: 048

REACTIONS (14)
  - ANURIA [None]
  - BLOOD CREATININE INCREASED [None]
  - BUNDLE BRANCH BLOCK LEFT [None]
  - BUNDLE BRANCH BLOCK RIGHT [None]
  - FALL [None]
  - GRAND MAL CONVULSION [None]
  - HYPERKALAEMIA [None]
  - LUNG DISORDER [None]
  - MALAISE [None]
  - PROTEIN TOTAL INCREASED [None]
  - PULMONARY OEDEMA [None]
  - RENAL FAILURE ACUTE [None]
  - SINOATRIAL BLOCK [None]
  - SINUS BRADYCARDIA [None]
